FAERS Safety Report 11740566 (Version 2)
Quarter: 2015Q4

REPORT INFORMATION
  Report Type: Spontaneous
  Country: US (occurrence: US)
  Receive Date: 20151110
  Receipt Date: 20151120
  Transmission Date: 20160304
  Serious: No
  Sender: FDA-Public Use
  Company Number: US-ELI_LILLY_AND_COMPANY-US201111005015

PATIENT
  Age: 65 Year
  Sex: Female

DRUGS (2)
  1. FORTEO [Suspect]
     Active Substance: TERIPARATIDE
     Dosage: 20 UG, QD
  2. FORTEO [Suspect]
     Active Substance: TERIPARATIDE
     Indication: OSTEOPOROSIS
     Dosage: 20 UG, QD
     Route: 065
     Dates: start: 201110

REACTIONS (8)
  - Arthralgia [Unknown]
  - Heart rate increased [Unknown]
  - Fall [Unknown]
  - Cystitis [Unknown]
  - Asthenia [Unknown]
  - Multiple fractures [Unknown]
  - Road traffic accident [Unknown]
  - Myalgia [Unknown]

NARRATIVE: CASE EVENT DATE: 20111109
